FAERS Safety Report 10363819 (Version 5)
Quarter: 2015Q1

REPORT INFORMATION
  Report Type: Spontaneous
  Country: US (occurrence: US)
  Receive Date: 20140805
  Receipt Date: 20150119
  Transmission Date: 20150720
  Serious: No
  Sender: FDA-Public Use
  Company Number: US-PFIZER INC-2014216315

PATIENT
  Age: 85 Year
  Sex: Female
  Weight: 87.98 kg

DRUGS (2)
  1. NITROSTAT [Suspect]
     Active Substance: NITROGLYCERIN
     Indication: ATRIAL FIBRILLATION
     Dosage: 0.4 MG, AS NEEDED
  2. NITROSTAT [Suspect]
     Active Substance: NITROGLYCERIN
     Indication: CARDIAC FAILURE CONGESTIVE

REACTIONS (3)
  - Drug ineffective for unapproved indication [Unknown]
  - Product odour abnormal [Unknown]
  - Product colour issue [Unknown]

NARRATIVE: CASE EVENT DATE: 20140730
